FAERS Safety Report 8673486 (Version 6)
Quarter: 2013Q2

REPORT INFORMATION
  Report Type: Spontaneous
  Country: US (occurrence: US)
  Receive Date: 20120719
  Receipt Date: 20130403
  Transmission Date: 20140414
  Serious: No
  Sender: FDA-Public Use
  Company Number: US-ASTRAZENECA-2012SE43461

PATIENT
  Age: 56 Year
  Sex: Male

DRUGS (4)
  1. SEROQUEL [Suspect]
     Route: 048
  2. SEROQUEL [Suspect]
     Route: 048
  3. NEXIUM [Suspect]
     Route: 048
  4. TOPROL XL [Suspect]
     Route: 048

REACTIONS (11)
  - Agoraphobia [Unknown]
  - Confusional state [Unknown]
  - Panic disorder [Unknown]
  - Phobia [Unknown]
  - Mental disorder [Unknown]
  - Cognitive disorder [Unknown]
  - Anxiety [Unknown]
  - Post-traumatic stress disorder [Unknown]
  - Impaired work ability [Unknown]
  - Increased upper airway secretion [Unknown]
  - Drug ineffective [Unknown]
